FAERS Safety Report 20907050 (Version 1)
Quarter: 2022Q2

REPORT INFORMATION
  Report Type: Spontaneous
  Country: PT (occurrence: GB)
  Receive Date: 20220602
  Receipt Date: 20220602
  Transmission Date: 20220720
  Serious: Yes (Other)
  Sender: FDA-Public Use
  Company Number: None

PATIENT

DRUGS (1)
  1. ESLICARBAZEPINE ACETATE [Suspect]
     Active Substance: ESLICARBAZEPINE ACETATE
     Indication: Trigeminal neuralgia
     Dosage: 1 DOSAGE FORM (200 UNITS NOT REPORTED), DAILY
     Route: 065
     Dates: start: 20220207, end: 20220210

REACTIONS (4)
  - Anxiety [Recovered/Resolved]
  - Amnesia [Recovered/Resolved with Sequelae]
  - Dizziness [Recovered/Resolved]
  - Product use in unapproved indication [Unknown]

NARRATIVE: CASE EVENT DATE: 20220208
